FAERS Safety Report 14732485 (Version 1)
Quarter: 2018Q2

REPORT INFORMATION
  Report Type: Spontaneous
  Country: US (occurrence: US)
  Receive Date: 20180409
  Receipt Date: 20180409
  Transmission Date: 20180711
  Serious: Yes (Hospitalization, Other)
  Sender: FDA-Public Use
  Company Number: US-ZYDUS-019628

PATIENT
  Age: 55 Year
  Sex: Female

DRUGS (7)
  1. WARFARIN [Suspect]
     Active Substance: WARFARIN
     Indication: PRODUCT USED FOR UNKNOWN INDICATION
     Route: 065
  2. ACETYLSALICYLIC ACID [Concomitant]
     Active Substance: ASPIRIN
     Indication: PRODUCT USED FOR UNKNOWN INDICATION
     Route: 065
  3. ATORVASTATIN [Concomitant]
     Active Substance: ATORVASTATIN
     Indication: PRODUCT USED FOR UNKNOWN INDICATION
     Route: 065
  4. ISOSORBIDE. [Concomitant]
     Active Substance: ISOSORBIDE
     Indication: PRODUCT USED FOR UNKNOWN INDICATION
     Route: 065
  5. METOPROLOL. [Concomitant]
     Active Substance: METOPROLOL
     Indication: PRODUCT USED FOR UNKNOWN INDICATION
     Route: 065
  6. SEVELAMER/SEVELAMER HYDROCHLORIDE [Concomitant]
     Indication: PRODUCT USED FOR UNKNOWN INDICATION
     Route: 065
  7. SEVELAMER/SEVELAMER HYDROCHLORIDE [Concomitant]
     Indication: PRODUCT USED FOR UNKNOWN INDICATION
     Route: 065

REACTIONS (16)
  - Breast pain [Recovering/Resolving]
  - Pain in extremity [Recovering/Resolving]
  - Calcium phosphate product increased [Unknown]
  - Ischaemia [Unknown]
  - Breast ulceration [Recovering/Resolving]
  - Skin ulcer [Recovering/Resolving]
  - Hyperparathyroidism secondary [Unknown]
  - Dystrophic calcification [Unknown]
  - Arterial occlusive disease [Unknown]
  - Hyperplasia [Unknown]
  - Vascular calcification [Unknown]
  - Pyrexia [Recovered/Resolved]
  - Chills [Unknown]
  - Aortic arteriosclerosis [Unknown]
  - Cardiomegaly [Unknown]
  - Calciphylaxis [Unknown]
